FAERS Safety Report 7876117-6 (Version None)
Quarter: 2011Q4

REPORT INFORMATION
  Report Type: 
  Country: None (occurrence: None)
  Receive Date: 20111031
  Receipt Date: 20111020
  Transmission Date: 20120403
  Serious: Yes (Other)
  Sender: FDA-Public Use
  Company Number: GB-TEVA-302540ISR

PATIENT
  Age: 61 Year
  Sex: Female
  Weight: 68 kg

DRUGS (3)
  1. LANSOPRAZOLE [Concomitant]
     Dosage: 30 MILLIGRAM;
  2. PREMARIN [Concomitant]
     Dosage: 1.25 MILLIGRAM;
  3. AMLODIPINE [Suspect]
     Dosage: 5 MILLIGRAM;
     Dates: start: 20090706, end: 20110920

REACTIONS (1)
  - GINGIVAL ATROPHY [None]
